FAERS Safety Report 9492816 (Version 1)
Quarter: 2013Q3

REPORT INFORMATION
  Report Type: Spontaneous
  Country: US (occurrence: US)
  Receive Date: 20130830
  Receipt Date: 20130830
  Transmission Date: 20140515
  Serious: Yes (Other)
  Sender: FDA-Public Use
  Company Number: US-ASTRAZENECA-2013SE65482

PATIENT
  Age: 57 Year
  Sex: Female
  Weight: 78 kg

DRUGS (10)
  1. NEXIUM [Suspect]
     Indication: GASTROOESOPHAGEAL REFLUX DISEASE
     Route: 048
     Dates: start: 2009, end: 2013
  2. NEXIUM [Suspect]
     Indication: GASTROOESOPHAGEAL REFLUX DISEASE
     Route: 048
     Dates: start: 2013
  3. OMEPRAZOLE OTC [Suspect]
     Indication: GASTROOESOPHAGEAL REFLUX DISEASE
     Route: 048
     Dates: start: 2013, end: 2013
  4. METOPROLOL [Suspect]
     Indication: SUPRAVENTRICULAR TACHYCARDIA
     Route: 048
     Dates: start: 2009
  5. BENICAR [Concomitant]
     Indication: HYPERTENSION
     Dates: start: 2009
  6. ASPIRIN [Concomitant]
     Indication: PROPHYLAXIS
  7. BUPROPRION XL [Concomitant]
     Indication: SEASONAL AFFECTIVE DISORDER
     Dates: start: 2009
  8. METFORMIN [Concomitant]
     Indication: GLUCOSE TOLERANCE IMPAIRED
     Dates: start: 2012
  9. ZYRTEC [Concomitant]
     Indication: HYPERSENSITIVITY
     Dates: start: 2008
  10. UNSPECIFIED ANTACIDS [Concomitant]

REACTIONS (6)
  - Supraventricular tachycardia [Unknown]
  - Gastrooesophageal reflux disease [Unknown]
  - Hypertension [Unknown]
  - Glucose tolerance impaired [Unknown]
  - Therapeutic response decreased [Unknown]
  - Intentional drug misuse [Unknown]
